FAERS Safety Report 10171925 (Version 2)
Quarter: 2014Q2

REPORT INFORMATION
  Report Type: Spontaneous
  Country: DK (occurrence: DK)
  Receive Date: 20140515
  Receipt Date: 20140530
  Transmission Date: 20141212
  Serious: Yes (Other)
  Sender: FDA-Public Use
  Company Number: DK-PFIZER INC-2014128842

PATIENT
  Age: 44 Year
  Sex: Female
  Weight: 58 kg

DRUGS (1)
  1. PROSTIN E2 [Suspect]
     Indication: LABOUR INDUCTION
     Dosage: 3 MG, 2X/DAY
     Route: 067
     Dates: start: 20140225, end: 20140226

REACTIONS (1)
  - Uterine hyperstimulation [Recovered/Resolved]
